FAERS Safety Report 8495267-7 (Version None)
Quarter: 2012Q3

REPORT INFORMATION
  Report Type: 
  Country: None (occurrence: None)
  Receive Date: 20120709
  Receipt Date: 20120620
  Transmission Date: 20120928
  Serious: No
  Sender: FDA-Public Use
  Company Number: US-ASTRAZENECA-2012SE41806

PATIENT
  Age: 65 Year
  Sex: Female
  Weight: 77.1 kg

DRUGS (10)
  1. KLONOPIN [Concomitant]
     Indication: ANXIETY
  2. PRILOSEC [Suspect]
     Route: 048
  3. PRILOSEC [Suspect]
     Dosage: GENERIC
     Route: 048
  4. NEXIUM [Suspect]
     Indication: GASTROOESOPHAGEAL REFLUX DISEASE
     Route: 048
  5. KLONOPIN [Concomitant]
     Indication: DEPRESSION
  6. PRILOSEC OTC [Suspect]
     Dosage: GENERIC
     Route: 048
  7. LOSARTAN POTASSIUM [Concomitant]
     Indication: HYPERTENSION
  8. PRILOSEC OTC [Suspect]
     Route: 048
     Dates: start: 20120601
  9. PROZAC [Concomitant]
     Indication: ANXIETY
  10. PROZAC [Concomitant]
     Indication: DEPRESSION

REACTIONS (4)
  - IRRITABLE BOWEL SYNDROME [None]
  - MALAISE [None]
  - INTENTIONAL DRUG MISUSE [None]
  - DRUG INEFFECTIVE [None]
